FAERS Safety Report 17581155 (Version 14)
Quarter: 2021Q3

REPORT INFORMATION
  Report Type: Report from Study
  Country: US (occurrence: US)
  Receive Date: 20200325
  Receipt Date: 20210929
  Transmission Date: 20211014
  Serious: Yes (Other)
  Sender: FDA-Public Use
  Company Number: US-SHIRE-US202011080

PATIENT
  Age: 45 Year
  Sex: Female
  Weight: 83 kg

DRUGS (21)
  1. TERRA [TEGAFUR;URACIL] [Concomitant]
     Indication: DYSPEPSIA
     Route: 065
  2. DAPSONE. [Concomitant]
     Active Substance: DAPSONE
     Route: 065
  3. LMX4 [Concomitant]
     Active Substance: LIDOCAINE
     Route: 065
  4. DIGESTIVE ENZYMES [AMYLASE;CELLULASE;LIPASE;MALTASE;PROTEASE;SUCRASE;T [Concomitant]
     Dosage: UNK
     Route: 065
  5. CYMBALTA [Concomitant]
     Active Substance: DULOXETINE HYDROCHLORIDE
     Route: 065
  6. PROGESTERONE. [Concomitant]
     Active Substance: PROGESTERONE
     Route: 065
  7. FLONASE [Concomitant]
     Active Substance: FLUTICASONE PROPIONATE
     Route: 065
  8. AZELASTINE. [Concomitant]
     Active Substance: AZELASTINE HYDROCHLORIDE
     Route: 065
  9. VITAMIN D3 [Concomitant]
     Active Substance: CHOLECALCIFEROL
     Route: 065
  10. LEVOTHYROXINE. [Concomitant]
     Active Substance: LEVOTHYROXINE
     Route: 065
  11. CETIRIZINE [Concomitant]
     Active Substance: CETIRIZINE HYDROCHLORIDE
     Route: 065
  12. ACETAMINOPHEN. [Concomitant]
     Active Substance: ACETAMINOPHEN
     Route: 065
  13. PROBIOTICS NOS [Concomitant]
     Active Substance: PROBIOTICS NOS
     Route: 065
  14. PHYTOESTROGEN [Concomitant]
     Active Substance: DIETARY SUPPLEMENT\HERBALS
     Route: 065
  15. COPAIBA [Concomitant]
     Route: 065
  16. SERENITY [Concomitant]
     Route: 065
  17. DIPHENHYDRAMINE. [Concomitant]
     Active Substance: DIPHENHYDRAMINE
     Route: 065
  18. EPINEPHRINE. [Concomitant]
     Active Substance: EPINEPHRINE
     Route: 065
  19. TURMERIC [CURCUMA LONGA] [Concomitant]
     Active Substance: HERBALS\TURMERIC
     Route: 065
  20. ESOMEPRAZOLE MAGNESIUM. [Concomitant]
     Active Substance: ESOMEPRAZOLE MAGNESIUM
     Route: 065
  21. CUVITRU [Suspect]
     Active Substance: HUMAN IMMUNOGLOBULIN G
     Indication: IMMUNODEFICIENCY COMMON VARIABLE
     Dosage: 12 GRAM, 1/WEEK
     Route: 058
     Dates: start: 20200120

REACTIONS (14)
  - Urinary tract infection [Unknown]
  - Blepharospasm [Unknown]
  - Throat tightness [Unknown]
  - Dizziness [Unknown]
  - Sinusitis [Unknown]
  - Urticaria [Not Recovered/Not Resolved]
  - Cholecystectomy [Unknown]
  - Injection site extravasation [Unknown]
  - Haematochezia [Unknown]
  - Injection site swelling [Unknown]
  - Hypoaesthesia oral [Unknown]
  - Nephrolithiasis [Unknown]
  - Upper respiratory tract infection [Unknown]
  - Pharyngitis streptococcal [Unknown]

NARRATIVE: CASE EVENT DATE: 202003
